FAERS Safety Report 10975376 (Version 1)
Quarter: 2015Q2

REPORT INFORMATION
  Report Type: Spontaneous
  Country: NO (occurrence: NO)
  Receive Date: 20150401
  Receipt Date: 20150401
  Transmission Date: 20150821
  Serious: Yes (Other)
  Sender: FDA-Public Use
  Company Number: NO-GLAXOSMITHKLINE-NO2015GSK032895

PATIENT
  Sex: Female

DRUGS (6)
  1. IMUREL [Concomitant]
     Active Substance: AZATHIOPRINE SODIUM
     Dosage: 150 MG, QD
     Route: 048
     Dates: start: 2013
  2. BENLYSTA [Suspect]
     Active Substance: BELIMUMAB
     Indication: SYSTEMIC LUPUS ERYTHEMATOSUS
     Dosage: UNK
     Route: 042
     Dates: start: 201406
  3. PREDNISOLON [Concomitant]
     Active Substance: PREDNISOLONE
     Dosage: 7.5 MG, QD
     Route: 048
  4. CALCIGRAN FORTE [Concomitant]
     Dosage: 1 UNK, QD
     Route: 048
  5. SOMAC [Concomitant]
     Active Substance: PANTOPRAZOLE SODIUM
     Dosage: 40 MG, QD
     Route: 048
  6. ILOMEDIN [Concomitant]
     Dosage: UNK
     Route: 042
     Dates: start: 201312

REACTIONS (13)
  - Chest discomfort [Recovered/Resolved]
  - Adverse event [Recovered/Resolved]
  - Cognitive disorder [Recovered/Resolved]
  - Transient ischaemic attack [Recovered/Resolved]
  - Headache [Recovered/Resolved]
  - Staring [Recovered/Resolved]
  - Flank pain [Recovered/Resolved]
  - Muscular weakness [Recovered/Resolved]
  - Cerebral disorder [Recovered/Resolved]
  - Chills [Recovered/Resolved]
  - Hypoaesthesia [Recovered/Resolved]
  - Dyspnoea [Recovered/Resolved]
  - Ill-defined disorder [Recovered/Resolved]

NARRATIVE: CASE EVENT DATE: 20140924
